FAERS Safety Report 16702819 (Version 1)
Quarter: 2019Q3

REPORT INFORMATION
  Report Type: Spontaneous
  Country: PT (occurrence: PT)
  Receive Date: 20190814
  Receipt Date: 20190814
  Transmission Date: 20191004
  Serious: Yes (Other)
  Sender: FDA-Public Use
  Company Number: PT-BAYER-2019-149616

PATIENT
  Age: 68 Year
  Sex: Male
  Weight: 92 kg

DRUGS (2)
  1. CYANOCOBALAMIN. [Concomitant]
     Active Substance: CYANOCOBALAMIN
  2. ULTRAVIST [Suspect]
     Active Substance: IOPROMIDE
     Indication: COMPUTERISED TOMOGRAM
     Dosage: 80 MG, UNK
     Route: 042
     Dates: start: 20190715, end: 20190715

REACTIONS (1)
  - Papule [Recovered/Resolved]

NARRATIVE: CASE EVENT DATE: 20190715
